FAERS Safety Report 14326860 (Version 1)
Quarter: 2017Q4

REPORT INFORMATION
  Report Type: Spontaneous
  Country: NO (occurrence: NO)
  Receive Date: 20171227
  Receipt Date: 20171227
  Transmission Date: 20180321
  Serious: Yes (Hospitalization)
  Sender: FDA-Public Use
  Company Number: NO-ORION CORPORATION ORION PHARMA-BUHY2017-0008

PATIENT
  Sex: Male
  Weight: 76 kg

DRUGS (5)
  1. LYRICA [Suspect]
     Active Substance: PREGABALIN
     Indication: SLEEP DISORDER
  2. LYRICA [Suspect]
     Active Substance: PREGABALIN
     Indication: ANXIETY
     Dosage: STRENGTH: 225 MG
     Route: 065
     Dates: start: 20120321, end: 20120710
  3. TRAMADOL/PARACETAMOL ORION [Suspect]
     Active Substance: ACETAMINOPHEN\TRAMADOL
     Dosage: STRENGTH: 50 MG
     Route: 065
  4. BUSPIRONE [Suspect]
     Active Substance: BUSPIRONE HYDROCHLORIDE
     Indication: ANXIETY
     Dosage: STRENGTH: 10 MG
     Route: 065
     Dates: start: 20160122, end: 20160305
  5. TRUXAL [Suspect]
     Active Substance: CHLORPROTHIXENE
     Indication: ANXIETY DISORDER
     Dosage: STRENGTH: 100 MG
     Route: 065
     Dates: start: 19911005, end: 19911023

REACTIONS (3)
  - Fall [Unknown]
  - Decreased interest [Recovered/Resolved with Sequelae]
  - Injury [Recovered/Resolved with Sequelae]

NARRATIVE: CASE EVENT DATE: 20110306
